FAERS Safety Report 17800036 (Version 1)
Quarter: 2020Q2

REPORT INFORMATION
  Report Type: Report from Study
  Country: GB (occurrence: GB)
  Receive Date: 20200518
  Receipt Date: 20200518
  Transmission Date: 20200714
  Serious: Yes (Hospitalization)
  Sender: FDA-Public Use
  Company Number: GB-MYLANLABS-2020M1042845

PATIENT
  Age: 59 Year
  Sex: Female

DRUGS (14)
  1. KISQALI [Suspect]
     Active Substance: RIBOCICLIB
     Dosage: 600 MILLIGRAM
     Route: 048
     Dates: start: 20200108, end: 20200128
  2. KISQALI [Suspect]
     Active Substance: RIBOCICLIB
     Indication: BREAST CANCER METASTATIC
     Dosage: 600 MG
     Route: 048
     Dates: start: 20190320, end: 20190410
  3. KISQALI [Suspect]
     Active Substance: RIBOCICLIB
     Dosage: 600 MILLIGRAM
     Route: 048
     Dates: start: 20190918, end: 20191008
  4. KISQALI [Suspect]
     Active Substance: RIBOCICLIB
     Dosage: 600 MILLIGRAM
     Route: 048
     Dates: start: 20200205, end: 20200225
  5. KISQALI [Suspect]
     Active Substance: RIBOCICLIB
     Dosage: 600 MILLIGRAM
     Route: 048
     Dates: start: 20190424, end: 20190506
  6. KISQALI [Suspect]
     Active Substance: RIBOCICLIB
     Dosage: 600 MILLIGRAM
     Route: 048
     Dates: start: 20191016, end: 20191105
  7. KISQALI [Suspect]
     Active Substance: RIBOCICLIB
     Dosage: 600 MILLIGRAM
     Route: 048
     Dates: start: 20191211, end: 20191231
  8. KISQALI [Suspect]
     Active Substance: RIBOCICLIB
     Dosage: 600 MILLIGRAM
     Route: 048
     Dates: start: 20190517, end: 20190606
  9. KISQALI [Suspect]
     Active Substance: RIBOCICLIB
     Dosage: 600 MILLIGRAM
     Route: 048
     Dates: start: 20190626, end: 20190716
  10. KISQALI [Suspect]
     Active Substance: RIBOCICLIB
     Dosage: 600 MILLIGRAM
     Route: 048
     Dates: start: 20200304
  11. KISQALI [Suspect]
     Active Substance: RIBOCICLIB
     Dosage: 600 MILLIGRAM
     Route: 048
     Dates: start: 20190724, end: 20190813
  12. KISQALI [Suspect]
     Active Substance: RIBOCICLIB
     Dosage: 600 MILLIGRAM
     Route: 048
     Dates: start: 20191113, end: 20191203
  13. LETROZOLE. [Suspect]
     Active Substance: LETROZOLE
     Indication: BREAST CANCER METASTATIC
     Dosage: 2.5 MG
     Route: 065
     Dates: start: 20190320
  14. KISQALI [Suspect]
     Active Substance: RIBOCICLIB
     Dosage: 600 MILLIGRAM
     Route: 048
     Dates: start: 20190821, end: 20190910

REACTIONS (10)
  - Neutrophil count decreased [Not Recovered/Not Resolved]
  - Stomatitis [Recovered/Resolved]
  - Fatigue [Recovered/Resolved]
  - Coccydynia [Recovered/Resolved]
  - Viral infection [Recovered/Resolved]
  - Pyrexia [Recovered/Resolved]
  - Constipation [Recovered/Resolved]
  - Rash [Recovered/Resolved]
  - Cough [Recovered/Resolved]
  - Blood bilirubin increased [Recovered/Resolved]

NARRATIVE: CASE EVENT DATE: 201904
